FAERS Safety Report 8584650-7 (Version None)
Quarter: 2012Q3

REPORT INFORMATION
  Report Type: 
  Country: None (occurrence: None)
  Receive Date: 20120810
  Receipt Date: 20120807
  Transmission Date: 20120928
  Serious: No
  Sender: FDA-Public Use
  Company Number: US-SANOFI-AVENTIS-2011SA084113

PATIENT
  Age: 48 Year
  Sex: Female
  Weight: 158.75 kg

DRUGS (9)
  1. ACTOS [Concomitant]
     Indication: TYPE 2 DIABETES MELLITUS
     Dosage: 15/500 MG 1 TAB BID
  2. LANTUS [Suspect]
     Dosage: DOSE:50 UNIT(S)
     Route: 058
     Dates: start: 20111114
  3. SOLOSTAR [Suspect]
     Dates: start: 20111114
  4. LEVOTHYROXINE SODIUM [Concomitant]
     Indication: HYPOTHYROIDISM
  5. LISINOPRIL [Concomitant]
     Indication: TYPE 2 DIABETES MELLITUS
  6. GLYBURIDE [Concomitant]
     Indication: TYPE 2 DIABETES MELLITUS
  7. LANTUS [Suspect]
     Dosage: DOSE:50 UNIT(S)
     Route: 058
  8. HUMALOG [Suspect]
  9. LISINOPRIL [Concomitant]
     Indication: HYPERTENSION

REACTIONS (1)
  - VISION BLURRED [None]
